FAERS Safety Report 17765648 (Version 1)
Quarter: 2020Q2

REPORT INFORMATION
  Report Type: Spontaneous
  Country: US (occurrence: US)
  Receive Date: 20200508
  Receipt Date: 20200508
  Transmission Date: 20200714
  Serious: No
  Sender: FDA-Public Use
  Company Number: None

PATIENT
  Age: 44 Year
  Sex: Female
  Weight: 79.83 kg

DRUGS (3)
  1. CIPROFLOXACIN. [Suspect]
     Active Substance: CIPROFLOXACIN
  2. DOXYCLINE [Suspect]
     Active Substance: DOXYCYCLINE
  3. LEVOFLOXACIN. [Suspect]
     Active Substance: LEVOFLOXACIN

REACTIONS (7)
  - Hypersensitivity [None]
  - Oropharyngeal pain [None]
  - Swelling face [None]
  - Hypoaesthesia [None]
  - Overweight [None]
  - Ventricular extrasystoles [None]
  - Tendon pain [None]
